FAERS Safety Report 15272425 (Version 3)
Quarter: 2018Q3

REPORT INFORMATION
  Report Type: Spontaneous
  Country: TW (occurrence: TW)
  Receive Date: 20180813
  Receipt Date: 20180910
  Transmission Date: 20181010
  Serious: Yes (Hospitalization)
  Sender: FDA-Public Use
  Company Number: TW-PFIZER INC-2018317582

PATIENT
  Age: 61 Year
  Sex: Female

DRUGS (2)
  1. SUTENT [Suspect]
     Active Substance: SUNITINIB MALATE
     Indication: GASTROINTESTINAL STROMAL TUMOUR
     Dosage: 50 MG, QD
     Dates: start: 20180710, end: 20180721
  2. SUTENT [Suspect]
     Active Substance: SUNITINIB MALATE
     Dosage: 3 DF, QD
     Dates: start: 20180811, end: 201808

REACTIONS (7)
  - Pyrexia [Unknown]
  - Hypogeusia [Recovered/Resolved]
  - Eyelid oedema [Recovered/Resolved]
  - Contusion [Unknown]
  - Nausea [Recovered/Resolved]
  - Blood count abnormal [Recovered/Resolved]
  - Blood pressure increased [Recovered/Resolved]

NARRATIVE: CASE EVENT DATE: 20180721
